FAERS Safety Report 7708406-X (Version None)
Quarter: 2011Q3

REPORT INFORMATION
  Report Type: 
  Country: None (occurrence: None)
  Receive Date: 20110825
  Receipt Date: 20110816
  Transmission Date: 20111222
  Serious: Yes (Other)
  Sender: FDA-Public Use
  Company Number: MX-ELI_LILLY_AND_COMPANY-MX201103002077

PATIENT
  Age: 7 Year
  Sex: Male

DRUGS (2)
  1. STRATTERA [Suspect]
     Dosage: 10 MG, EACH EVENING
     Route: 065
  2. STRATTERA [Suspect]
     Dosage: 25 MG, QD

REACTIONS (1)
  - BLOOD GLUCOSE INCREASED [None]
